FAERS Safety Report 14569058 (Version 1)
Quarter: 2018Q1

REPORT INFORMATION
  Report Type: Spontaneous
  Country: PL (occurrence: PL)
  Receive Date: 20180223
  Receipt Date: 20180223
  Transmission Date: 20180509
  Serious: Yes (Hospitalization)
  Sender: FDA-Public Use
  Company Number: PHHY2018PL024428

PATIENT
  Age: 86 Year
  Sex: Female

DRUGS (2)
  1. METRONIDAZOL [Suspect]
     Active Substance: METRONIDAZOLE
     Indication: DIVERTICULUM
     Dosage: UNK
     Route: 042
  2. AMOXICILLIN + CLAVULANATE POTASSIUM [Suspect]
     Active Substance: AMOXICILLIN\CLAVULANATE POTASSIUM
     Indication: DIVERTICULUM
     Dosage: UNK
     Route: 042

REACTIONS (3)
  - Subileus [Recovered/Resolved]
  - Drug ineffective [Unknown]
  - Flatulence [Recovered/Resolved]
